FAERS Safety Report 6419049-2 (Version None)
Quarter: 2009Q4

REPORT INFORMATION
  Report Type: 
  Country: None (occurrence: None)
  Receive Date: 20091028
  Receipt Date: 20091028
  Transmission Date: 20100525
  Serious: Yes (Hospitalization, Disabling, Other)
  Sender: FDA-Public Use
  Company Number: None

PATIENT
  Sex: Female

DRUGS (7)
  1. TYSABRI [Suspect]
     Indication: RELAPSING-REMITTING MULTIPLE SCLEROSIS
     Dosage: 300 MG EVERY 4 WEEKS IV DRIP
     Route: 041
     Dates: start: 20070515, end: 20090715
  2. TYSABRI [Suspect]
     Indication: RELAPSING-REMITTING MULTIPLE SCLEROSIS
     Dosage: 300 MG EVERY 4 WEEKS IV DRIP
     Route: 041
     Dates: start: 20090127, end: 20091021
  3. TEGRETOL [Concomitant]
  4. INDOMETHACIN [Concomitant]
  5. LYRICA [Concomitant]
  6. LIPITOR [Concomitant]
  7. VERAPAMIL [Concomitant]

REACTIONS (1)
  - HAEMOLYTIC ANAEMIA [None]
